FAERS Safety Report 18590776 (Version 6)
Quarter: 2023Q2

REPORT INFORMATION
  Report Type: Report from Study
  Country: CA (occurrence: CA)
  Receive Date: 20201208
  Receipt Date: 20230522
  Transmission Date: 20230722
  Serious: Yes (Hospitalization)
  Sender: FDA-Public Use
  Company Number: CA-NOVARTISPH-PHHY2017CA049098

PATIENT
  Age: 8 Year
  Sex: Female

DRUGS (10)
  1. ILARIS [Suspect]
     Active Substance: CANAKINUMAB
     Indication: Muckle-Wells syndrome
     Dosage: 150 MG  EVERY 8 WEEKS
     Route: 058
     Dates: start: 20170130
  2. ILARIS [Suspect]
     Active Substance: CANAKINUMAB
     Dosage: 60 MG
     Route: 065
     Dates: start: 20170913
  3. ILARIS [Suspect]
     Active Substance: CANAKINUMAB
     Dosage: 60 MG
     Route: 065
     Dates: start: 20171108
  4. ILARIS [Suspect]
     Active Substance: CANAKINUMAB
     Dosage: 120 MG, 8 WEEKS
     Route: 058
     Dates: start: 20180226
  5. ILARIS [Suspect]
     Active Substance: CANAKINUMAB
     Dosage: 150 MG EVERY 8 WEEKS
     Route: 058
     Dates: start: 20180620
  6. ILARIS [Suspect]
     Active Substance: CANAKINUMAB
     Dosage: 150 MG EVERY 8 WEEKS
     Route: 058
     Dates: start: 20181011
  7. ILARIS [Suspect]
     Active Substance: CANAKINUMAB
     Dosage: 150 MG EVERY 8 WEEKS
     Route: 058
     Dates: start: 20181204
  8. ILARIS [Suspect]
     Active Substance: CANAKINUMAB
     Dosage: 150 MG EVERY 8 WEEKS
     Route: 065
     Dates: start: 20190129
  9. ILARIS [Suspect]
     Active Substance: CANAKINUMAB
     Dosage: 150 MG EVERY 8 WEEKS
     Route: 065
     Dates: start: 20190724
  10. ILARIS [Suspect]
     Active Substance: CANAKINUMAB
     Dosage: 150 MG, EVERY 8 WEEKS
     Route: 058
     Dates: start: 20220915

REACTIONS (10)
  - Pyrexia [Recovered/Resolved]
  - Hypotension [Unknown]
  - Tooth disorder [Unknown]
  - Malaise [Unknown]
  - Headache [Recovering/Resolving]
  - Abdominal pain [Unknown]
  - Weight increased [Unknown]
  - Fatigue [Recovering/Resolving]
  - Condition aggravated [Unknown]
  - Incorrect dose administered [Unknown]

NARRATIVE: CASE EVENT DATE: 20170328
